FAERS Safety Report 7132070-4 (Version None)
Quarter: 2010Q4

REPORT INFORMATION
  Report Type: 
  Country: None (occurrence: None)
  Receive Date: 20101202
  Receipt Date: 20101123
  Transmission Date: 20110411
  Serious: Yes (Other)
  Sender: FDA-Public Use
  Company Number: PHHY2010FR80458

PATIENT
  Sex: Male

DRUGS (9)
  1. LESCOL [Suspect]
     Indication: HYPERCHOLESTEROLAEMIA
     Dosage: 40 MG
     Route: 048
  2. RASILEZ HCT [Suspect]
     Route: 048
  3. NITRODERM [Suspect]
     Indication: VASODILATATION
     Route: 062
  4. TRIATEC [Suspect]
     Indication: ANGIOTENSIN CONVERTING ENZYME INHIBITOR FOETOPATHY
     Dosage: 10 MG
     Route: 048
  5. SECTRAL [Suspect]
     Indication: HYPERTENSION
     Dosage: 400 MG
     Route: 048
  6. PHYSIOTENS [Suspect]
     Indication: HYPERTENSION
     Dosage: 0.4 MG, UNK
     Route: 048
  7. COUMADIN [Suspect]
     Indication: ANTICOAGULANT THERAPY
     Dosage: 2 MG
     Route: 048
  8. PARIET [Suspect]
     Indication: PROPHYLAXIS AGAINST GASTROINTESTINAL ULCER
  9. FLECAINE LP [Suspect]
     Indication: VENTRICULAR ARRHYTHMIA
     Dosage: 200
     Route: 048

REACTIONS (7)
  - DERMATITIS BULLOUS [None]
  - DRUG ERUPTION [None]
  - ERYSIPELAS [None]
  - LIMB DISCOMFORT [None]
  - LYMPHOEDEMA [None]
  - MUSCULOSKELETAL DISORDER [None]
  - VARICOSE ULCERATION [None]
